FAERS Safety Report 19230540 (Version 1)
Quarter: 2021Q2

REPORT INFORMATION
  Report Type: Spontaneous
  Country: US (occurrence: US)
  Receive Date: 20210506
  Receipt Date: 20210506
  Transmission Date: 20210717
  Serious: Yes (Other)
  Sender: FDA-Public Use
  Company Number: None

PATIENT
  Age: 64 Year
  Sex: Male
  Weight: 73.35 kg

DRUGS (4)
  1. LISINOPRIL. [Concomitant]
     Active Substance: LISINOPRIL
  2. FLECAINIDE [Concomitant]
     Active Substance: FLECAINIDE
  3. QUERCETIN [Concomitant]
     Active Substance: QUERCETIN
  4. ELIQUIS [Suspect]
     Active Substance: APIXABAN
     Indication: ATRIAL FIBRILLATION
     Dosage: ?          QUANTITY:1 TABLET(S);?
     Route: 048
     Dates: start: 20210212, end: 20210429

REACTIONS (4)
  - Nerve compression [None]
  - Muscular weakness [None]
  - Hypoaesthesia [None]
  - Haematoma [None]

NARRATIVE: CASE EVENT DATE: 20210428
